FAERS Safety Report 12881256 (Version 3)
Quarter: 2017Q2

REPORT INFORMATION
  Report Type: Spontaneous
  Country: US (occurrence: US)
  Receive Date: 20161025
  Receipt Date: 20170420
  Transmission Date: 20170830
  Serious: No
  Sender: FDA-Public Use
  Company Number: US-JNJFOC-20151104907

PATIENT
  Age: 12 Year
  Sex: Male

DRUGS (1)
  1. RISPERDAL [Suspect]
     Active Substance: RISPERIDONE
     Indication: TOURETTE^S DISORDER
     Route: 048
     Dates: start: 200611, end: 2010

REACTIONS (6)
  - Product use in unapproved indication [Unknown]
  - Off label use [Unknown]
  - Galactorrhoea [Unknown]
  - Gynaecomastia [Unknown]
  - Overweight [Unknown]
  - Hyperprolactinaemia [Unknown]

NARRATIVE: CASE EVENT DATE: 200611
